FAERS Safety Report 6998552-0 (Version None)
Quarter: 2010Q3

REPORT INFORMATION
  Report Type: 
  Country: None (occurrence: None)
  Receive Date: 20100920
  Receipt Date: 20090901
  Transmission Date: 20110219
  Serious: No
  Sender: FDA-Public Use
  Company Number: US-ASTRAZENECA-2009SE11258

PATIENT
  Sex: Male

DRUGS (3)
  1. SEROQUEL [Suspect]
     Route: 048
     Dates: start: 20081101
  2. GENERIC ZANTACT [Concomitant]
  3. FLUTICASONE PROPIONATE [Concomitant]

REACTIONS (1)
  - FALSE POSITIVE INVESTIGATION RESULT [None]
